FAERS Safety Report 10067885 (Version 3)
Quarter: 2017Q4

REPORT INFORMATION
  Report Type: Report from Study
  Country: US (occurrence: US)
  Receive Date: 20140409
  Receipt Date: 20171201
  Transmission Date: 20180320
  Serious: Yes (Hospitalization)
  Sender: FDA-Public Use
  Company Number: US-ROCHE-1376909

PATIENT
  Age: 61 Year
  Sex: Female
  Weight: 62 kg

DRUGS (2)
  1. TRASTUZUMAB. [Suspect]
     Active Substance: TRASTUZUMAB
     Indication: HER-2 POSITIVE BREAST CANCER
     Dosage: DATE OF LAST DOSE TAKEN ON 31/03/2014, 1 CYCLE
     Route: 037
     Dates: start: 20140331
  2. DEXAMETHASONE. [Concomitant]
     Active Substance: DEXAMETHASONE
     Route: 042

REACTIONS (6)
  - Arachnoiditis [Recovered/Resolved]
  - Confusional state [Not Recovered/Not Resolved]
  - Haemorrhage intracranial [Not Recovered/Not Resolved]
  - Hydrocephalus [Not Recovered/Not Resolved]
  - Headache [Recovered/Resolved]
  - Somnolence [Not Recovered/Not Resolved]

NARRATIVE: CASE EVENT DATE: 20140331
